FAERS Safety Report 7304031-3 (Version None)
Quarter: 2011Q1

REPORT INFORMATION
  Report Type: 
  Country: None (occurrence: None)
  Receive Date: 20110221
  Receipt Date: 20110208
  Transmission Date: 20110831
  Serious: No
  Sender: FDA-Public Use
  Company Number: CY-ELI_LILLY_AND_COMPANY-CY201102002454

PATIENT
  Age: 30 Year
  Sex: Male

DRUGS (2)
  1. CIALIS [Suspect]
     Dosage: 1 D/F, UNK
  2. CIALIS [Suspect]
     Indication: ERECTILE DYSFUNCTION
     Dosage: 20 MG, UNK
     Dates: start: 20070101

REACTIONS (3)
  - OFF LABEL USE [None]
  - EYELID OEDEMA [None]
  - VISION BLURRED [None]
